FAERS Safety Report 12855421 (Version 2)
Quarter: 2016Q4

REPORT INFORMATION
  Report Type: Report from Study
  Country: CN (occurrence: CN)
  Receive Date: 20161017
  Receipt Date: 20161202
  Transmission Date: 20170207
  Serious: Yes (Hospitalization)
  Sender: FDA-Public Use
  Company Number: CN-B.I. PHARMACEUTICALS,INC./RIDGEFIELD-2016-BI-50012BI

PATIENT
  Age: 58 Year
  Sex: Male
  Weight: 45 kg

DRUGS (4)
  1. BIBW 2992 [Suspect]
     Active Substance: AFATINIB
     Indication: SQUAMOUS CELL CARCINOMA OF HEAD AND NECK
     Route: 048
     Dates: start: 20151022
  2. VITAMIN B6 [Concomitant]
     Active Substance: PYRIDOXINE HYDROCHLORIDE
     Indication: NUTRITIONAL SUPPLEMENTATION
     Route: 042
     Dates: start: 20160725, end: 20160801
  3. AMINO ACID [Concomitant]
     Active Substance: AMINO ACIDS
     Indication: NUTRITIONAL SUPPLEMENTATION
     Dosage: COMPOUND
     Route: 042
     Dates: start: 20160725, end: 20160731
  4. VITAMIN C [Concomitant]
     Active Substance: ASCORBIC ACID
     Indication: NUTRITIONAL SUPPLEMENTATION
     Route: 042
     Dates: start: 20160725, end: 20160801

REACTIONS (3)
  - Oesophageal stenosis [Recovered/Resolved with Sequelae]
  - Respiratory tract infection [Unknown]
  - Tracheostomy malfunction [Recovered/Resolved with Sequelae]

NARRATIVE: CASE EVENT DATE: 20160726
